FAERS Safety Report 9232961 (Version 1)
Quarter: 2013Q1

REPORT INFORMATION
  Report Type: Spontaneous
  Country: US (occurrence: None)
  Receive Date: 20121031
  Receipt Date: 20121031
  Transmission Date: 20140127
  Serious: No
  Sender: FDA-Public Use
  Company Number: PHEH2012US013900

PATIENT
  Age: 33 Year
  Sex: Female

DRUGS (8)
  1. GILENYA [Suspect]
     Indication: MULTIPLE SCLEROSIS
     Route: 048
     Dates: start: 20120104
  2. ZOLPIDEM TARTRATE (ZOLPIDEM TARTRATE) [Concomitant]
  3. PROVENTIL INHALER (SALBUTAMOL) [Concomitant]
  4. LAMOTRIGINE (LAMOTRIGINE) [Concomitant]
  5. TRAZODONE (TRAZODONE) [Concomitant]
  6. METHYLPHENIDATE (METHYLPHENIDATE) [Concomitant]
  7. OMEPRAZOLE (OMEPRAZOLE) [Concomitant]
  8. DEXMETHYLPHENIDATE (DEXMETHYLPHENIDATE) [Concomitant]

REACTIONS (2)
  - Depressed mood [None]
  - Decreased interest [None]
